FAERS Safety Report 13355789 (Version 2)
Quarter: 2017Q2

REPORT INFORMATION
  Report Type: Spontaneous
  Country: CH (occurrence: CH)
  Receive Date: 20170321
  Receipt Date: 20170403
  Transmission Date: 20170830
  Serious: Yes (Death)
  Sender: FDA-Public Use
  Company Number: CH-PFIZER INC-2017119803

PATIENT

DRUGS (4)
  1. PARACETAMOL [Suspect]
     Active Substance: ACETAMINOPHEN
     Dosage: UNK
  2. LORAZEPAM. [Suspect]
     Active Substance: LORAZEPAM
     Dosage: UNK
  3. IBUPROFEN. [Suspect]
     Active Substance: IBUPROFEN
     Dosage: UNK
  4. CLOZAPIN [Suspect]
     Active Substance: CLOZAPINE
     Dosage: UNK

REACTIONS (1)
  - Accidental poisoning [Fatal]
